FAERS Safety Report 14822422 (Version 1)
Quarter: 2018Q2

REPORT INFORMATION
  Report Type: Spontaneous
  Country: US (occurrence: US)
  Receive Date: 20180427
  Receipt Date: 20180427
  Transmission Date: 20180711
  Serious: Yes (Hospitalization)
  Sender: FDA-Public Use
  Company Number: US-PFIZER INC-2018169397

PATIENT
  Age: 8 Year
  Sex: Female
  Weight: 31.75 kg

DRUGS (1)
  1. GENOTROPIN [Suspect]
     Active Substance: SOMATROPIN
     Indication: GROWTH HORMONE DEFICIENCY
     Dosage: 1.1 MG, 1X/DAY
     Dates: start: 2014

REACTIONS (1)
  - Reactive attachment disorder of infancy or early childhood [Recovering/Resolving]

NARRATIVE: CASE EVENT DATE: 2014
